FAERS Safety Report 7378238-3 (Version None)
Quarter: 2011Q1

REPORT INFORMATION
  Report Type: 
  Country: None (occurrence: None)
  Receive Date: 20110328
  Receipt Date: 20110321
  Transmission Date: 20110831
  Serious: Yes (Hospitalization, Disabling)
  Sender: FDA-Public Use
  Company Number: B0696669A

PATIENT
  Sex: Male
  Weight: 75.4 kg

DRUGS (12)
  1. OGAST [Concomitant]
     Route: 065
     Dates: start: 20100208
  2. STEROGYL [Concomitant]
     Route: 065
     Dates: start: 20090422
  3. ATHYMIL [Concomitant]
     Route: 065
     Dates: start: 20091006
  4. IMOVANE [Concomitant]
     Route: 065
     Dates: start: 20090505
  5. LANSOYL [Concomitant]
     Route: 065
     Dates: start: 20101004
  6. DEROXAT [Suspect]
     Route: 065
     Dates: start: 20101102, end: 20110131
  7. KETODERM [Concomitant]
     Route: 065
     Dates: start: 20090716
  8. HEMIGOXINE NATIVELLE [Concomitant]
     Route: 065
     Dates: start: 20090407
  9. LASIX [Concomitant]
     Route: 065
     Dates: start: 20090810
  10. RAMIPRIL [Concomitant]
     Route: 065
     Dates: start: 20090407
  11. TRANSIPEG [Concomitant]
     Route: 065
     Dates: start: 20100805
  12. KARDEGIC [Concomitant]
     Route: 065
     Dates: start: 20090805

REACTIONS (9)
  - CONJUNCTIVITIS [None]
  - OCULAR HYPERTENSION [None]
  - VISUAL ACUITY REDUCED [None]
  - FATIGUE [None]
  - MYDRIASIS [None]
  - CORNEAL OEDEMA [None]
  - UVEITIS [None]
  - EYE PAIN [None]
  - DEHYDRATION [None]
